FAERS Safety Report 21487300 (Version 1)
Quarter: 2022Q4

REPORT INFORMATION
  Report Type: Spontaneous
  Country: US (occurrence: US)
  Receive Date: 20221020
  Receipt Date: 20221020
  Transmission Date: 20230113
  Serious: No
  Sender: FDA-Public Use
  Company Number: US-ANIPHARMA-2022-US-021936

PATIENT
  Age: 84 Year
  Sex: Female
  Weight: 88.45 kg

DRUGS (1)
  1. CHOLESTYRAMINE [Suspect]
     Active Substance: CHOLESTYRAMINE
     Indication: Diarrhoea
     Dosage: 1 SCOOP IN WATER 2 HOURS AFTER BREAKFAST AND DINNER
     Route: 048

REACTIONS (3)
  - Gastrooesophageal reflux disease [Recovering/Resolving]
  - Flatulence [Recovering/Resolving]
  - Product use in unapproved indication [Not Recovered/Not Resolved]

NARRATIVE: CASE EVENT DATE: 20180101
